FAERS Safety Report 16468075 (Version 5)
Quarter: 2020Q3

REPORT INFORMATION
  Report Type: Report from Study
  Country: US (occurrence: US)
  Receive Date: 20190624
  Receipt Date: 20200326
  Transmission Date: 20201105
  Serious: Yes (Hospitalization)
  Sender: FDA-Public Use
  Company Number: US-ROCHE-2134349

PATIENT
  Age: 80 Year
  Sex: Female
  Weight: 57.6 kg

DRUGS (46)
  1. POLATUZUMAB VEDOTIN. [Suspect]
     Active Substance: POLATUZUMAB VEDOTIN
     Indication: DIFFUSE LARGE B-CELL LYMPHOMA
     Dosage: ON DAY 1 OF EVERY 21 DAY CYCLE FOR 6 CYCLES (AS PER PROTOCOL)?DATE OF MOST RECENT DOSE OF POLATUZUMA
     Route: 042
     Dates: start: 20180524
  2. HEPARIN LOCK FLUSH [Concomitant]
     Active Substance: HEPARIN SODIUM
     Route: 042
     Dates: start: 20180523, end: 20180612
  3. BENADRYL [Concomitant]
     Active Substance: DIPHENHYDRAMINE HYDROCHLORIDE
     Route: 042
     Dates: start: 20180613, end: 20180613
  4. NEULASTA [Concomitant]
     Active Substance: PEGFILGRASTIM
     Route: 058
     Dates: start: 20180705, end: 20180705
  5. SUSTOL [Concomitant]
     Active Substance: GRANISETRON
     Indication: PROPHYLAXIS OF NAUSEA AND VOMITING
     Route: 058
     Dates: start: 20180524, end: 20180524
  6. CINVANTI [Concomitant]
     Active Substance: APREPITANT
     Indication: PROPHYLAXIS OF NAUSEA AND VOMITING
     Route: 042
     Dates: start: 20180613, end: 20180613
  7. CYCLOPHOSPHAMIDE. [Suspect]
     Active Substance: CYCLOPHOSPHAMIDE
     Indication: DIFFUSE LARGE B-CELL LYMPHOMA
     Dosage: DAY 1 OF EVERY 21 DAY CYCLE FOR 6 CYCLES (AS PER PROTOCOL)?DATE OF MOST RECENT DOSE 1155 MG OF CYCL
     Route: 042
     Dates: start: 20180524
  8. ALLOPURINOL. [Concomitant]
     Active Substance: ALLOPURINOL
     Indication: TUMOUR LYSIS SYNDROME
     Route: 048
     Dates: start: 20180523, end: 20180601
  9. DIFLUCAN [Concomitant]
     Active Substance: FLUCONAZOLE
     Indication: CANDIDA INFECTION
     Route: 048
     Dates: start: 20180523, end: 20180706
  10. TYLENOL [Concomitant]
     Active Substance: ACETAMINOPHEN
     Route: 048
     Dates: start: 20180705, end: 20180705
  11. TYLENOL [Concomitant]
     Active Substance: ACETAMINOPHEN
     Dosage: SUBSEQUENT DOSE RECEIVED ON 12/SEP/2018 AND 03/OCT/2018
     Route: 048
     Dates: start: 20180822, end: 20180822
  12. PROMETHAZINE [Concomitant]
     Active Substance: PROMETHAZINE HYDROCHLORIDE
     Indication: NAUSEA
     Route: 048
     Dates: start: 20180523, end: 20180614
  13. FLUZONE [INFLUENZA VACCINE] [Concomitant]
     Route: 030
     Dates: start: 20181003, end: 20181003
  14. PLACEBO [Suspect]
     Active Substance: UNSPECIFIED INGREDIENT
     Indication: DIFFUSE LARGE B-CELL LYMPHOMA
     Dosage: ON DAY 1 OF EVERY 21 DAY CYCLE FOR 6 CYCLES, AS PER PROTOCOL?DATE OF MOST RECENT DOSE PRIOR TO FEBRI
     Route: 042
     Dates: start: 20180524
  15. CHLORPROMAZINE. [Concomitant]
     Active Substance: CHLORPROMAZINE
     Indication: NAUSEA
     Route: 048
     Dates: start: 20180518
  16. MILK OF MAGNESIA [Concomitant]
     Active Substance: MAGNESIUM HYDROXIDE
     Indication: CONSTIPATION
     Route: 048
     Dates: start: 20180511
  17. SUSTOL [Concomitant]
     Active Substance: GRANISETRON
     Route: 058
     Dates: start: 20180613, end: 20180613
  18. CINVANTI [Concomitant]
     Active Substance: APREPITANT
     Route: 042
     Dates: start: 20180705, end: 20180705
  19. CINVANTI [Concomitant]
     Active Substance: APREPITANT
     Dosage: SUBSEQUENT DOSE RECEIVED ON 12/SEP/2018
     Route: 042
     Dates: start: 20180822, end: 20180822
  20. ALPHA LIPOIC ACID [Concomitant]
     Active Substance: .ALPHA.-LIPOIC ACID
     Route: 065
     Dates: start: 20180523
  21. ACTIVASE [Concomitant]
     Active Substance: ALTEPLASE
     Indication: PROPHYLAXIS
     Route: 042
     Dates: start: 20180613, end: 20180613
  22. BENADRYL [Concomitant]
     Active Substance: DIPHENHYDRAMINE HYDROCHLORIDE
     Indication: PROPHYLAXIS
     Route: 042
     Dates: start: 20180523, end: 20181024
  23. BENADRYL [Concomitant]
     Active Substance: DIPHENHYDRAMINE HYDROCHLORIDE
     Route: 042
     Dates: start: 20180705, end: 20180705
  24. TYLENOL [Concomitant]
     Active Substance: ACETAMINOPHEN
     Indication: PROPHYLAXIS
     Route: 048
     Dates: start: 20180523, end: 20180523
  25. SUSTOL [Concomitant]
     Active Substance: GRANISETRON
     Route: 058
     Dates: start: 20180705, end: 20180705
  26. TRAMADOL. [Concomitant]
     Active Substance: TRAMADOL
     Indication: PAIN
     Route: 048
     Dates: start: 20180316
  27. ALPHA LIPOIC ACID [Concomitant]
     Active Substance: .ALPHA.-LIPOIC ACID
     Indication: NEUROPATHY PERIPHERAL
     Route: 065
     Dates: start: 20180912
  28. RITUXIMAB. [Suspect]
     Active Substance: RITUXIMAB
     Indication: DIFFUSE LARGE B-CELL LYMPHOMA
     Dosage: ON DAY 1 OF EVERY 21 DAY CYCLE FOR 6 CYCLES THEN AS MONOTHERAPY IN CYCLES 7 AND 8, AS PER PROTOCOL?D
     Route: 042
     Dates: start: 20180523
  29. DOXORUBICIN [Suspect]
     Active Substance: DOXORUBICIN
     Indication: DIFFUSE LARGE B-CELL LYMPHOMA
     Dosage: ON DAY 1 OF EVERY 21 DAY CYCLE FOR 6 CYCLES, AS PER PROTOCOL?DATE OF MOST RECENT DOSE 77 MG OF DOXOR
     Route: 042
     Dates: start: 20180524
  30. BENADRYL [Concomitant]
     Active Substance: DIPHENHYDRAMINE HYDROCHLORIDE
     Dosage: SUBSEQUENT DOSE RECEIVED ON 12/SEP/2018 AND 03/OCT/2018
     Route: 042
     Dates: start: 20180822, end: 20180822
  31. NEULASTA [Concomitant]
     Active Substance: PEGFILGRASTIM
     Route: 058
     Dates: start: 20180613, end: 20180613
  32. XGEVA [Concomitant]
     Active Substance: DENOSUMAB
     Indication: METASTASES TO BONE
     Route: 058
     Dates: start: 20180822, end: 20180822
  33. CINVANTI [Concomitant]
     Active Substance: APREPITANT
     Indication: PROPHYLAXIS OF NAUSEA AND VOMITING
     Route: 042
     Dates: start: 20180524, end: 20180524
  34. PREDNISONE. [Concomitant]
     Active Substance: PREDNISONE
     Indication: PREMEDICATION
     Route: 048
     Dates: start: 20180517, end: 20180522
  35. VITAMIN D3 [Concomitant]
     Active Substance: CHOLECALCIFEROL
     Route: 048
     Dates: start: 20180912
  36. PREDNISONE. [Suspect]
     Active Substance: PREDNISONE
     Indication: PREMEDICATION
  37. TYLENOL EXTRA STRENGTH [Concomitant]
     Active Substance: ACETAMINOPHEN
     Indication: PAIN
     Route: 048
     Dates: start: 20180511
  38. ZOFRAN [Concomitant]
     Active Substance: ONDANSETRON HYDROCHLORIDE
     Indication: NAUSEA
     Route: 048
     Dates: start: 20180518
  39. TYLENOL [Concomitant]
     Active Substance: ACETAMINOPHEN
     Route: 048
     Dates: start: 20180613, end: 20180613
  40. NEULASTA [Concomitant]
     Active Substance: PEGFILGRASTIM
     Indication: PROPHYLAXIS
     Route: 058
     Dates: start: 20180524, end: 20180524
  41. SUSTOL [Concomitant]
     Active Substance: GRANISETRON
     Dosage: SUBSEQUENT DOSE RECEIVED ON 12/SEP/2018
     Route: 058
     Dates: start: 20180822, end: 20180822
  42. PREDNISONE. [Suspect]
     Active Substance: PREDNISONE
     Indication: DIFFUSE LARGE B-CELL LYMPHOMA
     Dosage: ON DAYS 1?5 OF EVERY 21?DAY CYCLE FOR 6 CYCLES (AS PER PROTOCOL) ?DATE OF MOST RECENT DOSE 100 MG OF
     Route: 042
     Dates: start: 20180523
  43. DIFLUCAN [Concomitant]
     Active Substance: FLUCONAZOLE
     Indication: FUNGAL SKIN INFECTION
     Dosage: SUBSEQUENT DOSE RECEIVED ON 12/OCT/2018?19/OCT/2018
     Route: 048
     Dates: start: 20180627, end: 20180704
  44. ENTECAVIR. [Concomitant]
     Active Substance: ENTECAVIR
     Indication: HEPATITIS B
     Route: 048
     Dates: start: 20180523, end: 20181024
  45. NEULASTA [Concomitant]
     Active Substance: PEGFILGRASTIM
     Dosage: SUBSEQUENT DOSE RECEIVED ON 12/SEP/2018
     Route: 058
     Dates: start: 20180822, end: 20180822
  46. PREDNISONE. [Concomitant]
     Active Substance: PREDNISONE
     Indication: BACK PAIN
     Route: 048
     Dates: start: 20181005, end: 20181022

REACTIONS (2)
  - Clostridium difficile colitis [Recovered/Resolved]
  - Febrile neutropenia [Recovered/Resolved]

NARRATIVE: CASE EVENT DATE: 20180601
